FAERS Safety Report 9297957 (Version 3)
Quarter: 2013Q3

REPORT INFORMATION
  Report Type: Spontaneous
  Country: IE (occurrence: IE)
  Receive Date: 20130520
  Receipt Date: 20130813
  Transmission Date: 20140515
  Serious: Yes (Other)
  Sender: FDA-Public Use
  Company Number: IE-JNJFOC-20130507036

PATIENT
  Age: 54 Year
  Sex: Female

DRUGS (7)
  1. STELARA [Suspect]
     Indication: PSORIASIS
     Route: 058
     Dates: start: 20120807, end: 20130806
  2. MOVICOL [Concomitant]
     Route: 065
  3. ARTHROTEC [Concomitant]
     Route: 065
  4. RESOLOR [Concomitant]
     Route: 065
  5. IXPRIM [Concomitant]
     Route: 065
  6. ZYRTEC [Concomitant]
     Route: 065
  7. SOTACOR [Concomitant]
     Route: 065

REACTIONS (3)
  - Herpes zoster [Recovered/Resolved]
  - Fall [Unknown]
  - Pain [Unknown]
